FAERS Safety Report 16640900 (Version 3)
Quarter: 2022Q1

REPORT INFORMATION
  Report Type: Report from Study
  Country: US (occurrence: None)
  Receive Date: 20190729
  Receipt Date: 20220210
  Transmission Date: 20220423
  Serious: Yes (Other)
  Sender: FDA-Public Use
  Company Number: US-ROCHE-2357127

PATIENT
  Age: 86 Year
  Sex: Female
  Weight: 72.1 kg

DRUGS (3)
  1. ATEZOLIZUMAB [Suspect]
     Active Substance: ATEZOLIZUMAB
     Indication: Bladder transitional cell carcinoma
     Dosage: 8 CYCLES
     Route: 041
     Dates: start: 20180705
  2. AMIODARONE [Concomitant]
     Active Substance: AMIODARONE
     Route: 048
     Dates: start: 20180712
  3. SOTALOL [Concomitant]
     Active Substance: SOTALOL

REACTIONS (3)
  - Chronic kidney disease [Recovered/Resolved]
  - Nephritis [Not Recovered/Not Resolved]
  - Blood creatinine increased [Recovered/Resolved]

NARRATIVE: CASE EVENT DATE: 20180719
